FAERS Safety Report 4945431-6 (Version None)
Quarter: 2006Q1

REPORT INFORMATION
  Report Type: 
  Country: None (occurrence: None)
  Receive Date: 20060316
  Receipt Date: 20060123
  Transmission Date: 20060701
  Serious: Yes (Life-Threatening, Other)
  Sender: FDA-Public Use
  Company Number: US-GLAXOSMITHKLINE-A0590505A

PATIENT
  Age: 28 Year
  Sex: Male
  Weight: 96.8 kg

DRUGS (4)
  1. ZOFRAN [Suspect]
     Indication: PROPHYLAXIS OF NAUSEA AND VOMITING
     Dosage: 8MG SEE DOSAGE TEXT
     Route: 042
     Dates: start: 20060121, end: 20060122
  2. ACE INHIBITOR [Concomitant]
  3. RAMIPRIL [Concomitant]
     Dosage: 2.5MG PER DAY
     Route: 048
  4. CARVEDILOL [Concomitant]
     Dosage: 3.125MG TWICE PER DAY
     Route: 048

REACTIONS (4)
  - DEPRESSED LEVEL OF CONSCIOUSNESS [None]
  - DISORIENTATION [None]
  - DRUG ADMINISTRATION ERROR [None]
  - SYNCOPE VASOVAGAL [None]
